FAERS Safety Report 22372685 (Version 8)
Quarter: 2023Q2

REPORT INFORMATION
  Report Type: Report from Study
  Country: CH (occurrence: None)
  Receive Date: 20230526
  Receipt Date: 20230628
  Transmission Date: 20230722
  Serious: Yes (Hospitalization)
  Sender: FDA-Public Use
  Company Number: CH-Eisai Medical Research-EC-2023-141035

PATIENT
  Age: 72 Year
  Sex: Male
  Weight: 78.7 kg

DRUGS (13)
  1. LENVATINIB [Suspect]
     Active Substance: LENVATINIB
     Indication: Malignant melanoma
     Dosage: STARTING DOSE AT 20 MG, FLUCTUATED DOSAGE
     Route: 048
     Dates: start: 20211223, end: 20220328
  2. QUAVONLIMAB [Suspect]
     Active Substance: QUAVONLIMAB
     Indication: Malignant melanoma
     Dosage: MK-1308 25 MG + MK-3475 400 MG
     Route: 042
     Dates: start: 20211223, end: 20230411
  3. PEMBROLIZUMAB [Suspect]
     Active Substance: PEMBROLIZUMAB
     Dosage: MK-1308 25 MG + MK-3475 400 MG
     Route: 042
     Dates: start: 20230616
  4. CALCIUM\CHOLECALCIFEROL [Concomitant]
     Active Substance: CALCIUM\CHOLECALCIFEROL
     Dates: start: 20211217
  5. LACDIGEST [Concomitant]
     Dates: start: 2021
  6. XGEVA [Concomitant]
     Active Substance: DENOSUMAB
     Dates: start: 20220203
  7. CANDESARTAN [Concomitant]
     Active Substance: CANDESARTAN
     Dates: start: 20220505
  8. PRURI MED LIPOLOTION [Concomitant]
     Dates: start: 20220617
  9. PRURI-MED [Concomitant]
     Dates: start: 20220617
  10. AMLODIPINE [Concomitant]
     Active Substance: AMLODIPINE BESYLATE
     Dates: start: 20221004
  11. BILASTINE [Concomitant]
     Active Substance: BILASTINE
     Dates: start: 20221205
  12. LEVOFLOXACIN [Concomitant]
     Active Substance: LEVOFLOXACIN
     Dates: start: 20230511, end: 20230515
  13. AMOXICILLIN [Concomitant]
     Active Substance: AMOXICILLIN
     Dates: start: 20230515, end: 20230517

REACTIONS (1)
  - Viral infection [Recovered/Resolved]

NARRATIVE: CASE EVENT DATE: 20230517
